FAERS Safety Report 23250902 (Version 1)
Quarter: 2023Q4

REPORT INFORMATION
  Report Type: Report from Study
  Country: US (occurrence: US)
  Receive Date: 20231201
  Receipt Date: 20231201
  Transmission Date: 20240110
  Serious: Yes (Hospitalization)
  Sender: FDA-Public Use
  Company Number: US-UCBSA-2022044883

PATIENT
  Age: 81 Year
  Sex: Female

DRUGS (2)
  1. LACOSAMIDE [Suspect]
     Active Substance: LACOSAMIDE
     Indication: Seizure
     Dosage: 75 MILLIGRAM, 2X/DAY (BID) (150MG-0.5 TAB BID)
  2. LACOSAMIDE [Suspect]
     Active Substance: LACOSAMIDE
     Dosage: VIMPAT 75MG IN AM AND VIMPAT 50MG IN PM.

REACTIONS (9)
  - Shoulder fracture [Unknown]
  - Fall [Unknown]
  - Dizziness [Unknown]
  - Urinary tract infection [Unknown]
  - Hypertension [Unknown]
  - Herpes zoster [Unknown]
  - Wrong technique in product usage process [Unknown]
  - Off label use [Unknown]
  - Treatment noncompliance [Unknown]

NARRATIVE: CASE EVENT DATE: 20220730
